FAERS Safety Report 8198099-2 (Version None)
Quarter: 2012Q1

REPORT INFORMATION
  Report Type: 
  Country: None (occurrence: None)
  Receive Date: 20120309
  Receipt Date: 20120305
  Transmission Date: 20120608
  Serious: No
  Sender: FDA-Public Use
  Company Number: US-TEVA-326700USA

PATIENT
  Age: 24 Year
  Sex: Female

DRUGS (2)
  1. COPAXONE [Suspect]
     Indication: MULTIPLE SCLEROSIS
     Route: 058
     Dates: start: 20111201
  2. ALLEGRA-D 12 HOUR [Concomitant]

REACTIONS (2)
  - DYSPNOEA [None]
  - BACK PAIN [None]
